FAERS Safety Report 5196748-4 (Version None)
Quarter: 2006Q4

REPORT INFORMATION
  Report Type: 
  Country: None (occurrence: None)
  Receive Date: 20061229
  Receipt Date: 20061229
  Transmission Date: 20070319
  Serious: Yes (Hospitalization)
  Sender: FDA-Public Use
  Company Number: None

PATIENT
  Sex: Female
  Weight: 68 kg

DRUGS (2)
  1. VANCOMYCIN [Suspect]
     Indication: INFECTION
     Dosage: 1250 MG Q18H IV
     Route: 042
     Dates: start: 20061129, end: 20061211
  2. CIPRO [Suspect]
     Indication: INFECTION
     Dosage: 750 MG BID PO
     Route: 048
     Dates: start: 20061128, end: 20061213

REACTIONS (1)
  - RASH [None]
